FAERS Safety Report 8252712-X (Version None)
Quarter: 2012Q2

REPORT INFORMATION
  Report Type: 
  Country: None (occurrence: None)
  Receive Date: 20120402
  Receipt Date: 20110831
  Transmission Date: 20120825
  Serious: No
  Sender: FDA-Public Use
  Company Number: US-ABBOTT-11P-163-0850536-00

PATIENT
  Sex: Male
  Weight: 72.64 kg

DRUGS (1)
  1. ANDROGEL [Suspect]
     Indication: BLOOD TESTOSTERONE DECREASED
     Dosage: ONE PACKET ONCE DAILY
     Dates: start: 20100101

REACTIONS (5)
  - DECREASED INTEREST [None]
  - DRUG EFFECT DECREASED [None]
  - MOOD ALTERED [None]
  - MUSCLE DISORDER [None]
  - ASTHENIA [None]
